FAERS Safety Report 16541122 (Version 1)
Quarter: 2019Q3

REPORT INFORMATION
  Report Type: Spontaneous
  Country: US (occurrence: US)
  Receive Date: 20190708
  Receipt Date: 20190708
  Transmission Date: 20191004
  Serious: Yes (Death)
  Sender: FDA-Public Use
  Company Number: US-PFIZER INC-2019105789

PATIENT
  Age: 67 Year
  Sex: Female
  Weight: 77.56 kg

DRUGS (1)
  1. TORISEL [Suspect]
     Active Substance: TEMSIROLIMUS
     Indication: METASTATIC UTERINE CANCER
     Dosage: 25 MG, WEEKLY (ONCE A WEEK)
     Route: 042
     Dates: start: 20190411, end: 20190523

REACTIONS (3)
  - Product use in unapproved indication [Unknown]
  - Off label use [Unknown]
  - Neoplasm progression [Fatal]
